FAERS Safety Report 22399820 (Version 1)
Quarter: 2023Q2

REPORT INFORMATION
  Report Type: Spontaneous
  Country: KR (occurrence: KR)
  Receive Date: 20230602
  Receipt Date: 20230602
  Transmission Date: 20230722
  Serious: No
  Sender: FDA-Public Use
  Company Number: KR-PFIZER INC-PV202300093130

PATIENT
  Age: 10 Year
  Sex: Female

DRUGS (1)
  1. GENOTROPIN [Suspect]
     Active Substance: SOMATROPIN
     Indication: Short stature
     Dosage: 7.8 IU, SIX TIMES A WEEK
     Dates: end: 20230523

REACTIONS (3)
  - Prescription drug used without a prescription [Unknown]
  - Overdose [Unknown]
  - Wrong technique in product usage process [Unknown]
